FAERS Safety Report 21028724 (Version 1)
Quarter: 2022Q2

REPORT INFORMATION
  Report Type: Spontaneous
  Country: US (occurrence: None)
  Receive Date: 20220630
  Receipt Date: 20220630
  Transmission Date: 20220721
  Serious: No
  Sender: FDA-Public Use
  Company Number: 2022A225045

PATIENT
  Sex: Female
  Weight: 64.9 kg

DRUGS (1)
  1. TEZSPIRE [Suspect]
     Active Substance: TEZEPELUMAB-EKKO
     Route: 058
     Dates: start: 202201

REACTIONS (1)
  - Visual impairment [Unknown]
